FAERS Safety Report 7979435-6 (Version None)
Quarter: 2011Q4

REPORT INFORMATION
  Report Type: 
  Country: None (occurrence: None)
  Receive Date: 20111213
  Receipt Date: 20111213
  Transmission Date: 20120403
  Serious: No
  Sender: FDA-Public Use
  Company Number: None

PATIENT
  Age: 62 Year
  Sex: Male
  Weight: 86.3 kg

DRUGS (2)
  1. VANCOMYCIN HYCHLORIDE [Suspect]
     Indication: CELLULITIS
     Dosage: 1.25 GM BID IV
     Route: 042
     Dates: start: 20110917, end: 20110919
  2. CIPROFLOXACIN [Suspect]
     Indication: CELLULITIS
     Dosage: 400 MG BID IV
     Route: 042
     Dates: start: 20110917, end: 20110919

REACTIONS (10)
  - EOSINOPHILIA [None]
  - CONDITION AGGRAVATED [None]
  - URTICARIA [None]
  - PRURITUS [None]
  - BURNING SENSATION [None]
  - WRONG DRUG ADMINISTERED [None]
  - DRUG HYPERSENSITIVITY [None]
  - ERYTHEMA MULTIFORME [None]
  - RASH [None]
  - PAIN [None]
